FAERS Safety Report 6707378-4 (Version None)
Quarter: 2010Q2

REPORT INFORMATION
  Report Type: 
  Country: None (occurrence: None)
  Receive Date: 20100429
  Receipt Date: 20100421
  Transmission Date: 20101027
  Serious: Yes (Death)
  Sender: FDA-Public Use
  Company Number: 2010SP016502

PATIENT
  Age: 66 Year
  Sex: Male

DRUGS (14)
  1. MIRTAZAPINE [Suspect]
     Indication: DEPRESSION
     Dosage: 15 MG;QD;PO ; 30 MG;QD;PO
     Route: 048
     Dates: start: 20100217, end: 20100224
  2. MIRTAZAPINE [Suspect]
     Indication: DEPRESSION
     Dosage: 15 MG;QD;PO ; 30 MG;QD;PO
     Route: 048
     Dates: start: 20100225
  3. SEROQUEL [Suspect]
     Indication: DEPRESSION
     Dosage: 25 MG;QD;PO ; 50 MG;QD;PO ; 75 MG;QD;PO ; 50 MG;QD;PO ; 25 MG;QD;PO
     Route: 048
     Dates: start: 20100201, end: 20100203
  4. SEROQUEL [Suspect]
     Indication: DEPRESSION
     Dosage: 25 MG;QD;PO ; 50 MG;QD;PO ; 75 MG;QD;PO ; 50 MG;QD;PO ; 25 MG;QD;PO
     Route: 048
     Dates: start: 20100204, end: 20100210
  5. SEROQUEL [Suspect]
     Indication: DEPRESSION
     Dosage: 25 MG;QD;PO ; 50 MG;QD;PO ; 75 MG;QD;PO ; 50 MG;QD;PO ; 25 MG;QD;PO
     Route: 048
     Dates: start: 20100211, end: 20100216
  6. SEROQUEL [Suspect]
     Indication: DEPRESSION
     Dosage: 25 MG;QD;PO ; 50 MG;QD;PO ; 75 MG;QD;PO ; 50 MG;QD;PO ; 25 MG;QD;PO
     Route: 048
     Dates: start: 20100217, end: 20100224
  7. SEROQUEL [Suspect]
     Indication: DEPRESSION
     Dosage: 25 MG;QD;PO ; 50 MG;QD;PO ; 75 MG;QD;PO ; 50 MG;QD;PO ; 25 MG;QD;PO
     Route: 048
     Dates: start: 20100225
  8. MOSAPRIDE CITRATE [Concomitant]
  9. ZYPREXA [Concomitant]
  10. RISPERDAL [Concomitant]
  11. RABEPRAZOLE SODIUM [Concomitant]
  12. NITRAZEPAM [Concomitant]
  13. POLAPREZINC [Concomitant]
  14. DIMETHICONE [Concomitant]

REACTIONS (4)
  - ABDOMINAL PAIN UPPER [None]
  - COMPLETED SUICIDE [None]
  - DYSGEUSIA [None]
  - NO THERAPEUTIC RESPONSE [None]
